FAERS Safety Report 5159558-X (Version None)
Quarter: 2006Q4

REPORT INFORMATION
  Report Type: 
  Country: None (occurrence: None)
  Receive Date: 20061129
  Receipt Date: 20061121
  Transmission Date: 20070319
  Serious: Yes (Hospitalization, Other)
  Sender: FDA-Public Use
  Company Number: 2006UW25844

PATIENT
  Age: 63 Year
  Sex: Female

DRUGS (2)
  1. ARIMIDEX [Suspect]
     Route: 048
  2. RADIATION TREATMENT [Concomitant]
     Indication: RECTAL CANCER

REACTIONS (1)
  - COLITIS ISCHAEMIC [None]
